FAERS Safety Report 8927829 (Version 2)
Quarter: 2012Q4

REPORT INFORMATION
  Report Type: 
  Country: CN (occurrence: CN)
  Receive Date: 20121127
  Receipt Date: 20121210
  Transmission Date: 20130627
  Serious: Yes (Death, Other)
  Sender: FDA-Public Use
  Company Number: CN-009507513-1211CHN009990

PATIENT
  Age: 76 Year
  Sex: Female
  Weight: 51 kg

DRUGS (31)
  1. CLARITYNE [Suspect]
     Indication: RASH
     Dosage: 10 mg
     Route: 048
     Dates: start: 20100723, end: 20100723
  2. HUPERZINE A [Concomitant]
     Indication: ATRIAL FIBRILLATION
  3. HUPERZINE A [Concomitant]
     Indication: CEREBRAL ARTERY EMBOLISM
  4. HUPERZINE A [Concomitant]
     Indication: HYPERTENSION
  5. HUPERZINE A [Concomitant]
     Indication: CORONARY ARTERY DISEASE
  6. HUPERZINE A [Concomitant]
     Indication: RASH
  7. LIPTOR [Concomitant]
     Indication: ATRIAL FIBRILLATION
  8. LIPTOR [Concomitant]
     Indication: CEREBRAL ARTERY EMBOLISM
  9. LIPTOR [Concomitant]
     Indication: HYPERTENSION
  10. LIPTOR [Concomitant]
     Indication: RASH
  11. LIPTOR [Concomitant]
     Indication: CORONARY ARTERY DISEASE
  12. CLOPIDOGREL BISULFATE [Concomitant]
     Indication: ATRIAL FIBRILLATION
  13. CLOPIDOGREL BISULFATE [Concomitant]
     Indication: CORONARY ARTERY DISEASE
  14. CLOPIDOGREL BISULFATE [Concomitant]
     Indication: HYPERTENSION
  15. CLOPIDOGREL BISULFATE [Concomitant]
     Indication: RASH
  16. CLOPIDOGREL BISULFATE [Concomitant]
     Indication: CEREBRAL ARTERY EMBOLISM
  17. DIOVAN [Concomitant]
     Indication: ATRIAL FIBRILLATION
  18. DIOVAN [Concomitant]
     Indication: CEREBRAL ARTERY EMBOLISM
  19. DIOVAN [Concomitant]
     Indication: HYPERTENSION
  20. DIOVAN [Concomitant]
     Indication: RASH
  21. DIOVAN [Concomitant]
     Indication: CORONARY ARTERY DISEASE
  22. ISOSORBIDE MONONITRATE [Concomitant]
     Indication: ATRIAL FIBRILLATION
  23. ISOSORBIDE MONONITRATE [Concomitant]
     Indication: CEREBRAL ARTERY EMBOLISM
  24. ISOSORBIDE MONONITRATE [Concomitant]
     Indication: CORONARY ARTERY DISEASE
  25. ISOSORBIDE MONONITRATE [Concomitant]
     Indication: HYPERTENSION
  26. ISOSORBIDE MONONITRATE [Concomitant]
     Indication: RASH
  27. BISOPROLOL FUMARATE [Concomitant]
     Indication: ATRIAL FIBRILLATION
  28. BISOPROLOL FUMARATE [Concomitant]
     Indication: CEREBRAL ARTERY EMBOLISM
  29. BISOPROLOL FUMARATE [Concomitant]
     Indication: HYPERTENSION
  30. BISOPROLOL FUMARATE [Concomitant]
     Indication: RASH
  31. BISOPROLOL FUMARATE [Concomitant]
     Indication: CORONARY ARTERY DISEASE

REACTIONS (5)
  - Death [Fatal]
  - Coma [Unknown]
  - Monoplegia [Unknown]
  - Atrial fibrillation [Unknown]
  - Cerebral artery embolism [Unknown]
